FAERS Safety Report 25007392 (Version 2)
Quarter: 2025Q1

REPORT INFORMATION
  Report Type: Spontaneous
  Country: IT (occurrence: IT)
  Receive Date: 20250225
  Receipt Date: 20250304
  Transmission Date: 20250409
  Serious: Yes (Life-Threatening, Other)
  Sender: ALEXION PHARMACEUTICALS
  Company Number: None

PATIENT
  Age: 39 Year
  Weight: 70 kg

DRUGS (1)
  1. QUETIAPINE FUMARATE [Suspect]
     Active Substance: QUETIAPINE FUMARATE
     Indication: Personality disorder

REACTIONS (5)
  - Drug abuse [Recovered/Resolved]
  - Agitation [Recovered/Resolved]
  - Emotional distress [Recovered/Resolved]
  - Tachycardia [Recovered/Resolved]
  - Drug intolerance [Recovered/Resolved]
